FAERS Safety Report 6245126-5 (Version None)
Quarter: 2009Q2

REPORT INFORMATION
  Report Type: 
  Country: None (occurrence: None)
  Receive Date: 20090619
  Receipt Date: 20090511
  Transmission Date: 20091009
  Serious: No
  Sender: FDA-Public Use
  Company Number: ALL1-2009-01333

PATIENT
  Age: 38 Year
  Sex: Male
  Weight: 88.4 kg

DRUGS (2)
  1. VYVANSE [Suspect]
     Indication: ATTENTION DEFICIT/HYPERACTIVITY DISORDER
     Dosage: 50 MG, 1X/DAY;QD, ORAL
     Route: 048
     Dates: start: 20080101
  2. LAMICTAL [Concomitant]

REACTIONS (4)
  - BACK PAIN [None]
  - CONDITION AGGRAVATED [None]
  - HYPOAESTHESIA [None]
  - MUSCULAR WEAKNESS [None]
